FAERS Safety Report 8516762-8 (Version None)
Quarter: 2012Q3

REPORT INFORMATION
  Report Type: 
  Country: None (occurrence: None)
  Receive Date: 20120706
  Receipt Date: 20120502
  Transmission Date: 20120928
  Serious: Yes (Hospitalization)
  Sender: FDA-Public Use
  Company Number: GGEL20120100007

PATIENT
  Age: 77 Year
  Sex: Male
  Weight: 68 kg

DRUGS (8)
  1. TYLENOL [Concomitant]
  2. TOPROL-XL [Concomitant]
  3. LOSARTAN (LOSARTAN, HYDROCHLOROTHIAZIDE) [Concomitant]
  4. HUMULOG (INSULIN) [Concomitant]
  5. ASPIRIN [Concomitant]
  6. CALCIUM [Concomitant]
  7. HUMULIN N [Concomitant]
  8. PRAVASTATIN [Suspect]
     Indication: BLOOD CHOLESTEROL
     Dosage: 10 MILLIGRAM, 1 IN 1 D, ORAL
     Route: 048
     Dates: start: 20110926, end: 20111226

REACTIONS (11)
  - GLUCOSE URINE PRESENT [None]
  - PAIN IN EXTREMITY [None]
  - MUSCULOSKELETAL STIFFNESS [None]
  - BLOOD GLUCOSE INCREASED [None]
  - BLOOD CREATINE PHOSPHOKINASE MB INCREASED [None]
  - RED BLOOD CELL COUNT DECREASED [None]
  - ASTHENIA [None]
  - MYALGIA [None]
  - RHABDOMYOLYSIS [None]
  - BLOOD UREA INCREASED [None]
  - ABASIA [None]
